FAERS Safety Report 11176591 (Version 1)
Quarter: 2015Q2

REPORT INFORMATION
  Report Type: Spontaneous
  Country: US (occurrence: None)
  Receive Date: 20150609
  Receipt Date: 20150609
  Transmission Date: 20150821
  Serious: Yes (Hospitalization)
  Sender: FDA-Public Use
  Company Number: None

PATIENT
  Age: 55 Year
  Sex: Male

DRUGS (8)
  1. MULTIVITAMIN [Concomitant]
     Active Substance: VITAMINS
  2. LORATADINE. [Concomitant]
     Active Substance: LORATADINE
  3. METHYLPREDNISOLONE SODIUM SUCCINATE. [Suspect]
     Active Substance: METHYLPREDNISOLONE SODIUM SUCCINATE
     Indication: OSTEOARTHRITIS
  4. MARCAINE [Suspect]
     Active Substance: BUPIVACAINE HYDROCHLORIDE
  5. LIDOCAINE. [Suspect]
     Active Substance: LIDOCAINE
  6. ASCORBIC ACID. [Concomitant]
     Active Substance: ASCORBIC ACID
  7. LANSOPRAZOLE. [Concomitant]
     Active Substance: LANSOPRAZOLE
  8. OMEGA-3 FATTY ACIDS [Concomitant]
     Active Substance: OMEGA-3 FATTY ACIDS

REACTIONS (2)
  - Arthritis bacterial [None]
  - Staphylococcus test positive [None]

NARRATIVE: CASE EVENT DATE: 20150527
